FAERS Safety Report 18507543 (Version 2)
Quarter: 2020Q4

REPORT INFORMATION
  Report Type: Spontaneous
  Country: CN (occurrence: CN)
  Receive Date: 20201116
  Receipt Date: 20201120
  Transmission Date: 20210114
  Serious: Yes (Death, Life-Threatening, Hospitalization, Other)
  Sender: FDA-Public Use
  Company Number: CN-PFIZER INC-2020447353

PATIENT
  Age: 25 Year
  Sex: Male
  Weight: 57.9 kg

DRUGS (2)
  1. SODIUM CHLORIDE. [Concomitant]
     Active Substance: SODIUM CHLORIDE
     Indication: ELECTROLYTE IMBALANCE
     Dosage: 50 ML, 1X/DAY
     Route: 041
     Dates: start: 20201104, end: 20201107
  2. SOLU-MEDROL [Suspect]
     Active Substance: METHYLPREDNISOLONE SODIUM SUCCINATE
     Indication: PNEUMONIA ASPIRATION
     Dosage: 40 MG, 1X/DAY
     Route: 041
     Dates: start: 20201104, end: 20201107

REACTIONS (2)
  - Respiratory failure [Fatal]
  - Acute kidney injury [Recovering/Resolving]

NARRATIVE: CASE EVENT DATE: 20201107
